FAERS Safety Report 6450843-8 (Version None)
Quarter: 2009Q4

REPORT INFORMATION
  Report Type: 
  Country: None (occurrence: None)
  Receive Date: 20091123
  Receipt Date: 20090615
  Transmission Date: 20100525
  Serious: Yes (Other)
  Sender: FDA-Public Use
  Company Number: US-AMGEN-QUU338039

PATIENT
  Sex: Female
  Weight: 132.1 kg

DRUGS (6)
  1. ENBREL [Suspect]
     Indication: DRUG USE FOR UNKNOWN INDICATION
     Route: 058
     Dates: start: 20050701, end: 20090301
  2. NEXIUM [Concomitant]
  3. AMBIEN [Concomitant]
  4. VICODIN [Concomitant]
  5. ZANTAC [Concomitant]
  6. FLONASE [Concomitant]

REACTIONS (2)
  - DEMYELINATION [None]
  - OPTIC NEURITIS [None]
